FAERS Safety Report 11120359 (Version 1)
Quarter: 2015Q2

REPORT INFORMATION
  Report Type: Spontaneous
  Country: DE (occurrence: DE)
  Receive Date: 20150518
  Receipt Date: 20150518
  Transmission Date: 20150821
  Serious: Yes (Other)
  Sender: FDA-Public Use
  Company Number: DE-INCYTE CORPORATION-2015IN002104

PATIENT
  Sex: Female
  Weight: 42 kg

DRUGS (1)
  1. JAKAFI [Suspect]
     Active Substance: RUXOLITINIB
     Indication: GRAFT VERSUS HOST DISEASE
     Dosage: 10 MG, QD
     Route: 048

REACTIONS (5)
  - Sepsis [Unknown]
  - Pneumonia fungal [Unknown]
  - Infectious pleural effusion [Unknown]
  - Stomatitis [Unknown]
  - Off label use [Unknown]
